FAERS Safety Report 16270278 (Version 1)
Quarter: 2019Q2

REPORT INFORMATION
  Report Type: Spontaneous
  Country: US (occurrence: US)
  Receive Date: 20190329
  Receipt Date: 20190329
  Transmission Date: 20190711
  Serious: No
  Sender: FDA-Public Use
  Company Number: None

PATIENT
  Age: 65 Year
  Sex: Male

DRUGS (2)
  1. OPDIVO [Suspect]
     Active Substance: NIVOLUMAB
     Route: 042
     Dates: start: 20190329
  2. YERVOY [Concomitant]
     Active Substance: IPILIMUMAB

REACTIONS (1)
  - No adverse event [None]

NARRATIVE: CASE EVENT DATE: 20190329
